FAERS Safety Report 15546009 (Version 1)
Quarter: 2018Q4

REPORT INFORMATION
  Report Type: Spontaneous
  Country: US (occurrence: US)
  Receive Date: 20181018
  Receipt Date: 20181018
  Transmission Date: 20190205
  Serious: No
  Sender: FDA-Public Use
  Company Number: None

PATIENT
  Age: 77 Year
  Sex: Female

DRUGS (2)
  1. ZOLEDRONIC ACID 5 MG/100 ML [Suspect]
     Active Substance: ZOLEDRONIC ACID
     Indication: SENILE OSTEOPOROSIS
     Dosage: INFUSE 5MG VIA INTRAVENOUSLY OVER NO LESS THAN 15 MINS EVERY YEAR AS DIRECTED
     Route: 042
     Dates: start: 201506
  2. ZOLEDRONIC ACID 5 MG/100 ML [Suspect]
     Active Substance: ZOLEDRONIC ACID
     Indication: RHEUMATOID ARTHRITIS
     Dosage: INFUSE 5MG VIA INTRAVENOUSLY OVER NO LESS THAN 15 MINS EVERY YEAR AS DIRECTED
     Route: 042
     Dates: start: 201506

REACTIONS (2)
  - Malaise [None]
  - Therapy cessation [None]
